FAERS Safety Report 7591092-X (Version None)
Quarter: 2011Q3

REPORT INFORMATION
  Report Type: 
  Country: None (occurrence: None)
  Receive Date: 20110705
  Receipt Date: 20110624
  Transmission Date: 20111222
  Serious: Yes (Other)
  Sender: FDA-Public Use
  Company Number: GB-ASTRAZENECA-2011SE38272

PATIENT
  Age: 35 Year
  Sex: Male

DRUGS (7)
  1. ATENOLOL [Suspect]
     Dosage: 26 X 50 MG
     Route: 048
     Dates: start: 20030423
  2. CLOPIDOGREL [Suspect]
     Dosage: 26 X UNK DOSE
  3. CLOZAPINE [Suspect]
     Indication: SCHIZOPHRENIA
     Route: 048
     Dates: start: 20001201
  4. CLOZAPINE [Suspect]
     Dosage: 2800 MG
     Route: 048
     Dates: start: 20030423
  5. GAVISCON [Concomitant]
  6. CLOPIXOL [Suspect]
     Dosage: 28 X 100 MG
     Route: 048
     Dates: start: 20030423
  7. VALPROATE SODIUM [Concomitant]

REACTIONS (6)
  - MENTAL DISORDER [None]
  - DYSPEPSIA [None]
  - RETCHING [None]
  - OVERDOSE [None]
  - VOMITING [None]
  - MULTIPLE DRUG OVERDOSE [None]
